FAERS Safety Report 5822216-X (Version None)
Quarter: 2008Q3

REPORT INFORMATION
  Report Type: 
  Country: None (occurrence: None)
  Receive Date: 20080721
  Receipt Date: 20080709
  Transmission Date: 20090109
  Serious: Yes (Other)
  Sender: FDA-Public Use
  Company Number: GXKR2008DE06461

PATIENT
  Sex: Male

DRUGS (1)
  1. TRAMADOLOR (NGX) (TRAMADOL) ORAL SOLUTION [Suspect]
     Dosage: ORAL
     Route: 048

REACTIONS (3)
  - INTENTIONAL DRUG MISUSE [None]
  - MEDICATION TAMPERING [None]
  - PHARMACEUTICAL PRODUCT COMPLAINT [None]
